FAERS Safety Report 8928995 (Version 3)
Quarter: 2013Q1

REPORT INFORMATION
  Report Type: Spontaneous
  Country: JP (occurrence: None)
  Receive Date: 20121120
  Receipt Date: 20121226
  Transmission Date: 20140127
  Serious: Yes (Disabling, Other)
  Sender: FDA-Public Use
  Company Number: DSA_60914_2012

PATIENT
  Age: 70 Year
  Sex: Male

DRUGS (6)
  1. MACUGEN [Suspect]
     Indication: AGE-RELATED MACULAR DEGENERATION
     Dosage: LEFT EYE
     Route: 031
     Dates: start: 20090218, end: 20090218
  2. MACUGEN [Suspect]
     Indication: CHOROIDAL NEOVASCULARISATION
     Dosage: LEFT EYE
     Route: 031
     Dates: start: 20090218, end: 20090218
  3. CRAVIT [Concomitant]
  4. BENOXIL [Concomitant]
  5. NEGMIN [Concomitant]
  6. MYDRIN P [Concomitant]

REACTIONS (1)
  - VIIth nerve paralysis [None]
